FAERS Safety Report 19154969 (Version 1)
Quarter: 2021Q2

REPORT INFORMATION
  Report Type: Spontaneous
  Country: CZ (occurrence: CZ)
  Receive Date: 20210419
  Receipt Date: 20210419
  Transmission Date: 20210717
  Serious: Yes (Other)
  Sender: FDA-Public Use
  Company Number: CZ-TEVA-2021-CZ-1901727

PATIENT
  Age: 55 Year
  Sex: Male

DRUGS (2)
  1. BISOPROLOL [Suspect]
     Active Substance: BISOPROLOL
     Indication: HYPERTENSION
     Dosage: 5 MILLIGRAM DAILY; 5 MG 1?0?0
     Route: 048
  2. AMLODIPINE [Suspect]
     Active Substance: AMLODIPINE BESYLATE
     Indication: HYPERTENSION
     Dosage: 10 MILLIGRAM DAILY; 10 MG 1?0?0
     Route: 048

REACTIONS (4)
  - Erectile dysfunction [Recovering/Resolving]
  - Joint swelling [Recovered/Resolved]
  - Exercise tolerance decreased [Unknown]
  - Treatment noncompliance [Unknown]
